FAERS Safety Report 8018927-0 (Version None)
Quarter: 2012Q1

REPORT INFORMATION
  Report Type: 
  Country: None (occurrence: None)
  Receive Date: 20120103
  Receipt Date: 20111226
  Transmission Date: 20120608
  Serious: Yes (Other)
  Sender: FDA-Public Use
  Company Number: US-BAYER-2011-031935

PATIENT
  Age: 27 Year
  Sex: Female
  Weight: 65.76 kg

DRUGS (6)
  1. ZOLOFT [Concomitant]
     Dosage: 100 MG, QD
     Route: 048
  2. YASMIN [Suspect]
     Indication: CONTRACEPTION
     Dosage: UNK, QD
     Route: 048
     Dates: start: 20070201, end: 20090901
  3. ZANTAC [Concomitant]
     Dosage: 150 MG, BID
     Route: 048
  4. DICYCLOMINE [Concomitant]
     Dosage: 10 MG, UNK
     Route: 048
  5. DROSPIRENONE AND ETHINYL ESTRADIOL [Suspect]
     Indication: CONTRACEPTION
     Dosage: UNK UNK, QD
     Route: 048
     Dates: start: 20070201, end: 20090901
  6. OMEPRAZOLE [Concomitant]
     Dosage: 40 MG, QD
     Route: 048

REACTIONS (4)
  - PAIN [None]
  - GALLBLADDER NON-FUNCTIONING [None]
  - INJURY [None]
  - BILIARY DYSKINESIA [None]
